FAERS Safety Report 6544425-7 (Version None)
Quarter: 2010Q1

REPORT INFORMATION
  Report Type: 
  Country: None (occurrence: None)
  Receive Date: 20100120
  Receipt Date: 20100120
  Transmission Date: 20100710
  Serious: No
  Sender: FDA-Public Use
  Company Number: None

PATIENT
  Sex: Female
  Weight: 62.5964 kg

DRUGS (2)
  1. MOVIPREP [Suspect]
     Indication: COLONOSCOPY
     Dates: start: 20100103
  2. MOVIPREP [Suspect]
     Indication: COLONOSCOPY
     Dates: start: 20100104

REACTIONS (7)
  - CHEST DISCOMFORT [None]
  - DIZZINESS [None]
  - FATIGUE [None]
  - OEDEMA MOUTH [None]
  - ORAL DISORDER [None]
  - SWELLING FACE [None]
  - THIRST [None]
